FAERS Safety Report 6111039-2 (Version None)
Quarter: 2009Q1

REPORT INFORMATION
  Report Type: 
  Country: None (occurrence: None)
  Receive Date: 20090309
  Receipt Date: 20090309
  Transmission Date: 20090719
  Serious: Yes (Death)
  Sender: FDA-Public Use
  Company Number: None

PATIENT
  Sex: Male
  Weight: 122.4712 kg

DRUGS (10)
  1. BYETTA [Suspect]
     Indication: DIABETES MELLITUS
     Dosage: BID
     Route: 058
     Dates: start: 20080820, end: 20081102
  2. LAMISIL [Concomitant]
     Route: 048
     Dates: start: 20080519
  3. ZOLOFT [Concomitant]
  4. LISINOPRIL [Concomitant]
  5. LIPITOR [Concomitant]
  6. METFORMIN HCL [Concomitant]
  7. METOPROLOL SUCCINATE [Concomitant]
  8. ASPIRIN [Concomitant]
  9. CPAP MACHINE [Concomitant]
  10. AMARYL [Concomitant]
     Dates: start: 20080820

REACTIONS (1)
  - PANCREATITIS HAEMORRHAGIC [None]
